FAERS Safety Report 6332757-7 (Version None)
Quarter: 2009Q3

REPORT INFORMATION
  Report Type: 
  Country: None (occurrence: None)
  Receive Date: 20090827
  Receipt Date: 20090827
  Transmission Date: 20100115
  Serious: No
  Sender: FDA-Public Use
  Company Number: None

PATIENT
  Age: 8 Month

DRUGS (1)
  1. NOVAHISTINE DH [Suspect]
     Route: 048

REACTIONS (1)
  - DRUG DISPENSING ERROR [None]
